FAERS Safety Report 5233979-9 (Version None)
Quarter: 2007Q1

REPORT INFORMATION
  Report Type: 
  Country: None (occurrence: None)
  Receive Date: 20061204
  Receipt Date: 20060926
  Transmission Date: 20070707
  Serious: No
  Sender: FDA-Public Use
  Company Number: 2006-BP-06694BP

PATIENT
  Age: 93 Year
  Sex: Female

DRUGS (7)
  1. SPIRIVA [Suspect]
     Indication: CHRONIC OBSTRUCTIVE PULMONARY DISEASE
     Dosage: 18 MCG (18 MCG,1 IN 1 D),IH
     Route: 055
     Dates: start: 20050101
  2. SPIRIVA [Suspect]
  3. SEREVENT [Concomitant]
  4. FLOVENT [Concomitant]
  5. PREDNISONE TAB [Concomitant]
  6. PRINIVIL [Concomitant]
  7. OXYCODONE HCL [Concomitant]

REACTIONS (2)
  - DYSPNOEA [None]
  - FEELING ABNORMAL [None]
